FAERS Safety Report 10186351 (Version 1)
Quarter: 2014Q2

REPORT INFORMATION
  Report Type: Spontaneous
  Country: US (occurrence: US)
  Receive Date: 20140521
  Receipt Date: 20140521
  Transmission Date: 20141212
  Serious: No
  Sender: FDA-Public Use
  Company Number: US-ASTRAZENECA-2014SE07690

PATIENT
  Age: 89 Year
  Sex: Male
  Weight: 80.7 kg

DRUGS (4)
  1. PULMICORT FLEXHALER [Suspect]
     Indication: LOWER RESPIRATORY TRACT INFECTION
     Dosage: 90 MCG, 2 PUFFS PM DAILY
     Route: 055
     Dates: start: 2013
  2. PULMICORT FLEXHALER [Suspect]
     Indication: LOWER RESPIRATORY TRACT INFECTION
     Dosage: 90 MCG, 2 PUFFS AM DAILY
     Route: 055
     Dates: start: 20140123
  3. AZITHROMYCIN [Concomitant]
     Indication: LOWER RESPIRATORY TRACT INFECTION
     Dosage: TAPER UNK
     Dates: end: 201401
  4. METHYLPREDNISOLONE [Concomitant]
     Indication: LOWER RESPIRATORY TRACT INFECTION
     Dosage: UNKNOWN UNK
     Dates: end: 201401

REACTIONS (4)
  - Weight decreased [Unknown]
  - Productive cough [Recovered/Resolved]
  - Cough [Recovering/Resolving]
  - Intentional product misuse [Unknown]
